FAERS Safety Report 7149407-2 (Version None)
Quarter: 2010Q4

REPORT INFORMATION
  Report Type: 
  Country: None (occurrence: None)
  Receive Date: 20101209
  Receipt Date: 20100825
  Transmission Date: 20110411
  Serious: No
  Sender: FDA-Public Use
  Company Number: US-KINGPHARMUSA00001-K201001086

PATIENT
  Sex: Female

DRUGS (1)
  1. EMBEDA [Suspect]
     Indication: PAIN
     Dosage: UNK

REACTIONS (1)
  - HYPERHIDROSIS [None]
